FAERS Safety Report 10053113 (Version 1)
Quarter: 2014Q2

REPORT INFORMATION
  Report Type: Report from Study
  Country: BR (occurrence: BR)
  Receive Date: 20140402
  Receipt Date: 20140402
  Transmission Date: 20141212
  Serious: Yes (Hospitalization, Other)
  Sender: FDA-Public Use
  Company Number: PHHY2014BR036141

PATIENT
  Sex: Female

DRUGS (6)
  1. FORASEQ [Suspect]
     Indication: ASTHMA
     Dosage: 1 DF, (12/ 400 MCG, ONCE  IN THE MORNING AND ONCE AT NIGHT INHALATION)
     Route: 055
  2. CORTICOSTEROIDS [Suspect]
     Indication: RESPIRATORY TRACT INFECTION
     Dosage: UNK
  3. PREDSIM [Concomitant]
     Indication: ASTHMA
     Dosage: UNK
  4. EXPECTORANT SYRUP [Concomitant]
     Dosage: UNK
  5. AMOXICILLIN [Concomitant]
     Dosage: UNK
  6. LYRICA [Concomitant]
     Indication: PAIN
     Dosage: UNK

REACTIONS (10)
  - Respiratory tract infection [Recovering/Resolving]
  - Cough [Recovering/Resolving]
  - Fatigue [Recovering/Resolving]
  - Urinary tract infection pseudomonal [Recovering/Resolving]
  - Catarrh [Recovering/Resolving]
  - Malaise [Recovering/Resolving]
  - Infection [Recovering/Resolving]
  - Weight decreased [Recovering/Resolving]
  - Immune system disorder [Recovering/Resolving]
  - Swelling [Unknown]
